FAERS Safety Report 5021362-0 (Version None)
Quarter: 2006Q2

REPORT INFORMATION
  Report Type: 
  Country: None (occurrence: None)
  Receive Date: 20060608
  Receipt Date: 20060127
  Transmission Date: 20061013
  Serious: No
  Sender: FDA-Public Use
  Company Number: US-BRISTOL-MYERS SQUIBB COMPANY-13262662

PATIENT
  Age: 88 Year
  Sex: Female
  Weight: 39 kg

DRUGS (10)
  1. SINEMET [Suspect]
     Indication: PARKINSON'S DISEASE
     Dosage: DOSE VALUE:  25 MG/100 MG SEVERAL TIMES A DAY
  2. COMTAN [Suspect]
     Dates: start: 20051205, end: 20060107
  3. IMDUR [Concomitant]
  4. SEROQUEL [Concomitant]
  5. COZAAR [Concomitant]
  6. ARICEPT [Concomitant]
  7. NIFEREX [Concomitant]
  8. LASIX [Concomitant]
  9. POTASSIUM [Concomitant]
  10. ZANTAC [Concomitant]

REACTIONS (3)
  - ENDOCRINE TEST ABNORMAL [None]
  - HYPOAESTHESIA [None]
  - PARAESTHESIA [None]
